FAERS Safety Report 21681363 (Version 2)
Quarter: 2023Q1

REPORT INFORMATION
  Report Type: Spontaneous
  Country: BE (occurrence: None)
  Receive Date: 20221205
  Receipt Date: 20230207
  Transmission Date: 20230418
  Serious: Yes (Other)
  Sender: FDA-Public Use
  Company Number: 2022A393555

PATIENT
  Sex: Male
  Weight: 86 kg

DRUGS (6)
  1. DAPAGLIFLOZIN [Suspect]
     Active Substance: DAPAGLIFLOZIN
     Indication: Product used for unknown indication
     Route: 048
     Dates: start: 20220502, end: 20221128
  2. LARTAN [Concomitant]
     Indication: Blood pressure measurement
     Route: 048
     Dates: start: 2014
  3. PANTOMED [Concomitant]
     Indication: Gastrooesophageal reflux disease
     Route: 048
     Dates: start: 2012
  4. ATORVASTATIN [Concomitant]
     Active Substance: ATORVASTATIN
     Indication: Blood cholesterol
     Route: 048
     Dates: start: 2018
  5. PRAMIPEXOLE [Concomitant]
     Active Substance: PRAMIPEXOLE
     Indication: Restless legs syndrome
     Dosage: 2X0.08MG
     Route: 048
     Dates: start: 2017
  6. VITAMIN D [Concomitant]
     Active Substance: VITAMIN D NOS
     Indication: Vitamin D deficiency
     Dosage: 2000 U
     Route: 048
     Dates: start: 2017

REACTIONS (1)
  - Chalazion [Not Recovered/Not Resolved]
